FAERS Safety Report 5279607-8 (Version None)
Quarter: 2007Q1

REPORT INFORMATION
  Report Type: 
  Country: None (occurrence: None)
  Receive Date: 20070328
  Receipt Date: 20070316
  Transmission Date: 20070707
  Serious: Yes (Hospitalization, Other)
  Sender: FDA-Public Use
  Company Number: US-PFIZER INC-2007023695

PATIENT
  Sex: Female

DRUGS (2)
  1. NEURONTIN [Suspect]
     Dates: start: 20031101, end: 20041201
  2. ARICEPT [Suspect]

REACTIONS (3)
  - FRACTURE [None]
  - GENERAL PHYSICAL HEALTH DETERIORATION [None]
  - LUNG INFECTION [None]
